FAERS Safety Report 18711769 (Version 1)
Quarter: 2021Q1

REPORT INFORMATION
  Report Type: Spontaneous
  Country: US (occurrence: US)
  Receive Date: 20210107
  Receipt Date: 20210107
  Transmission Date: 20210419
  Serious: No
  Sender: FDA-Public Use
  Company Number: US-MYLANLABS-2020M1101659

PATIENT
  Sex: Female
  Weight: 65 kg

DRUGS (1)
  1. SCOPOLAMINE TRANSDERMAL SYSTEM [Suspect]
     Active Substance: SCOPOLAMINE
     Indication: MORNING SICKNESS
     Dosage: UNK
     Route: 062

REACTIONS (3)
  - Off label use [Unknown]
  - Maternal exposure during pregnancy [Unknown]
  - Product adhesion issue [Not Recovered/Not Resolved]
